FAERS Safety Report 7445985-4 (Version None)
Quarter: 2011Q2

REPORT INFORMATION
  Report Type: 
  Country: None (occurrence: None)
  Receive Date: 20110420
  Receipt Date: 20110418
  Transmission Date: 20111010
  Serious: Yes (Hospitalization, Other)
  Sender: FDA-Public Use
  Company Number: 2011-00189

PATIENT
  Age: 69 Year
  Sex: Female
  Weight: 74.8435 kg

DRUGS (1)
  1. ZICAM COLD REMEDY NASAL GEL SWABS [Suspect]
     Dosage: QID X 2 DAYS
     Dates: start: 20110208, end: 20110209

REACTIONS (1)
  - TRANSIENT ISCHAEMIC ATTACK [None]
